FAERS Safety Report 21719237 (Version 1)
Quarter: 2022Q4

REPORT INFORMATION
  Report Type: Spontaneous
  Country: IN (occurrence: IN)
  Receive Date: 20221213
  Receipt Date: 20221213
  Transmission Date: 20230113
  Serious: Yes (Death, Hospitalization, Other)
  Sender: FDA-Public Use
  Company Number: IN-ALKEM LABORATORIES LIMITED-IN-ALKEM-2022-13778

PATIENT
  Sex: Male

DRUGS (9)
  1. SIROLIMUS [Suspect]
     Active Substance: SIROLIMUS
     Indication: Congenital hyperinsulinaemic hypoglycaemia
     Dosage: 0.5MG/M2 /DAY (TABLET)
     Route: 048
  2. OCTREOTIDE [Concomitant]
     Active Substance: OCTREOTIDE
     Indication: Congenital hyperinsulinaemic hypoglycaemia
     Dosage: 15 MICROGRAM/KILOGRAM, QID (FOUR TIMES A DAY)
     Route: 058
  3. OCTREOTIDE [Concomitant]
     Active Substance: OCTREOTIDE
     Dosage: UNK (GRADUALLY TAPERED OFF)
     Route: 065
  4. DIAZOXIDE [Concomitant]
     Active Substance: DIAZOXIDE
     Indication: Congenital hyperinsulinaemic hypoglycaemia
     Dosage: 20 MILLIGRAM/KILOGRAM, TID THREE DIVIDED DOSES)
     Route: 048
  5. DIAZOXIDE [Concomitant]
     Active Substance: DIAZOXIDE
     Dosage: UNK (GRADUALLY TAPERED OFF)
     Route: 065
  6. NIFEDIPINE [Concomitant]
     Active Substance: NIFEDIPINE
     Indication: Congenital hyperinsulinaemic hypoglycaemia
     Dosage: 2 MILLIGRAM/KILOGRAM, TID (IN THREE DIVIDED DOSES )
     Route: 048
  7. NIFEDIPINE [Concomitant]
     Active Substance: NIFEDIPINE
     Dosage: UNK (GRADUALLY TAPERED OFF)
     Route: 065
  8. HYDROCHLOROTHIAZIDE [Concomitant]
     Active Substance: HYDROCHLOROTHIAZIDE
     Indication: Congenital hyperinsulinaemic hypoglycaemia
     Dosage: 3.5 MILLIGRAM, BID (TWO TIMES PER WEEK)
     Route: 048
  9. HYDROCHLOROTHIAZIDE [Concomitant]
     Active Substance: HYDROCHLOROTHIAZIDE
     Dosage: UNK (GRADUALLY TAPERED OFF)
     Route: 065

REACTIONS (5)
  - Haemophagocytic lymphohistiocytosis [Fatal]
  - Multiple organ dysfunction syndrome [Fatal]
  - Septic shock [Fatal]
  - Pneumonia [Fatal]
  - Acute respiratory distress syndrome [Fatal]
